FAERS Safety Report 5236082-7 (Version None)
Quarter: 2007Q1

REPORT INFORMATION
  Report Type: 
  Country: None (occurrence: None)
  Receive Date: 20070212
  Receipt Date: 20070129
  Transmission Date: 20070707
  Serious: Yes (Death, Hospitalization)
  Sender: FDA-Public Use
  Company Number: IT-AMGEN-UK209512

PATIENT

DRUGS (5)
  1. CINACALCET [Suspect]
     Indication: HYPERPARATHYROIDISM SECONDARY
     Route: 065
  2. CALCITRIOL [Concomitant]
     Route: 065
  3. VITAMIN D [Concomitant]
     Route: 065
  4. ACAMPROSATE CALCIUM [Concomitant]
     Route: 065
  5. SEVELAMER HCL [Concomitant]
     Route: 065

REACTIONS (3)
  - DEATH [None]
  - DRUG INTOLERANCE [None]
  - TRANSPLANT [None]
